FAERS Safety Report 25569763 (Version 2)
Quarter: 2025Q3

REPORT INFORMATION
  Report Type: Spontaneous
  Country: SD (occurrence: SD)
  Receive Date: 20250717
  Receipt Date: 20250814
  Transmission Date: 20251021
  Serious: Yes (Death, Hospitalization, Other)
  Sender: TAKEDA
  Company Number: SD-TAKEDA-2025TUS063281

PATIENT
  Age: 7 Year
  Sex: Male
  Weight: 23 kg

DRUGS (6)
  1. ELAPRASE [Suspect]
     Active Substance: IDURSULFASE
     Indication: Mucopolysaccharidosis II
     Dosage: UNK, 1/WEEK
     Dates: start: 202303
  2. ELAPRASE [Suspect]
     Active Substance: IDURSULFASE
  3. ELAPRASE [Suspect]
     Active Substance: IDURSULFASE
     Dosage: UNK UNK, 1/WEEK
     Dates: start: 20250311, end: 20250325
  4. ARTESUNATE [Concomitant]
     Active Substance: ARTESUNATE
     Indication: Malaria
     Dates: start: 20250325, end: 20250326
  5. QUININE [Concomitant]
     Active Substance: QUININE
     Indication: Cerebral malaria
     Dosage: 10 MILLIGRAMS/KG, Q8HR
     Dates: start: 20250327, end: 20250406
  6. ACYCLOVIR [Concomitant]
     Active Substance: ACYCLOVIR
     Indication: Encephalitis viral
     Dosage: 10 MILLIGRAM/KG, Q8HR
     Dates: start: 20250327, end: 20250406

REACTIONS (3)
  - Encephalitis viral [Fatal]
  - Cerebral malaria [Fatal]
  - Thrombocytopenia [Unknown]
